FAERS Safety Report 13565172 (Version 2)
Quarter: 2017Q3

REPORT INFORMATION
  Report Type: Spontaneous
  Country: JP (occurrence: JP)
  Receive Date: 20170519
  Receipt Date: 20170705
  Transmission Date: 20171127
  Serious: Yes (Hospitalization)
  Sender: FDA-Public Use
  Company Number: JP-PFIZER INC-2017220588

PATIENT

DRUGS (1)
  1. CELECOX [Suspect]
     Active Substance: CELECOXIB
     Indication: ARTHRITIS INFECTIVE
     Dosage: 200 MG, 2X/DAY
     Route: 048

REACTIONS (3)
  - Fracture [Unknown]
  - Product use in unapproved indication [Unknown]
  - Fall [Unknown]
